FAERS Safety Report 6141680-2 (Version None)
Quarter: 2009Q2

REPORT INFORMATION
  Report Type: 
  Country: None (occurrence: None)
  Receive Date: 20090402
  Receipt Date: 20090326
  Transmission Date: 20091009
  Serious: Yes (Other)
  Sender: FDA-Public Use
  Company Number: US-ELI_LILLY_AND_COMPANY-US200812001492

PATIENT
  Sex: Female

DRUGS (15)
  1. HUMALOG [Suspect]
     Dosage: UNK, AS NEEDED
     Dates: start: 20060301
  2. HUMULIN N [Suspect]
     Dosage: 15 U, EACH EVENING
     Dates: start: 20060101
  3. DIOVAN [Concomitant]
     Dosage: 80 MG, DAILY (1/D)
  4. PROGRAF [Concomitant]
     Dosage: 3 MG, UNK
  5. TOPROL-XL [Concomitant]
     Dosage: 5 MG, DAILY (1/D)
  6. ALTACE [Concomitant]
     Dosage: 5 MG, UNK
  7. CELLCEPT [Concomitant]
     Dosage: 750 MG, 2/D
  8. METFORMIN HCL [Concomitant]
     Dosage: 500 MG, 2/D
  9. LIPITOR [Concomitant]
     Dosage: 20 MG, DAILY (1/D)
  10. GLIPIZIDE [Concomitant]
     Dosage: 10 MG, 2/D
  11. MULTI-VITAMIN [Concomitant]
     Dosage: UNK, DAILY (1/D)
  12. SURFAK [Concomitant]
     Dosage: 720 MG, DAILY (1/D)
  13. ASPIRIN [Concomitant]
     Dosage: 81 MG, DAILY (1/D)
  14. MAGNESIUM SULFATE [Concomitant]
     Dosage: 500 MG, DAILY (1/D)
  15. CARDIZEM CD [Concomitant]
     Dosage: 240 MG, DAILY (1/D)

REACTIONS (1)
  - BLINDNESS [None]
